FAERS Safety Report 25989771 (Version 1)
Quarter: 2025Q4

REPORT INFORMATION
  Report Type: Spontaneous
  Country: US (occurrence: US)
  Receive Date: 20251103
  Receipt Date: 20251103
  Transmission Date: 20260117
  Serious: No
  Sender: BAYER HEALTHCARE LLC
  Company Number: US-BAYER-2025A144432

PATIENT
  Sex: Female

DRUGS (1)
  1. MIRALAX [Suspect]
     Active Substance: POLYETHYLENE GLYCOL 3350
     Indication: Gastrointestinal motility disorder
     Dosage: 1 CAPFUL DOSE
     Route: 048
     Dates: start: 20251028, end: 20251031

REACTIONS (1)
  - Therapeutic product effect variable [Not Recovered/Not Resolved]

NARRATIVE: CASE EVENT DATE: 20251028
